FAERS Safety Report 14419135 (Version 1)
Quarter: 2018Q1

REPORT INFORMATION
  Report Type: Spontaneous
  Country: US (occurrence: US)
  Receive Date: 20180120
  Receipt Date: 20180120
  Transmission Date: 20180509
  Serious: Yes (Hospitalization)
  Sender: FDA-Public Use
  Company Number: None

PATIENT
  Age: 31 Year

DRUGS (2)
  1. MAKENA [Suspect]
     Active Substance: HYDROXYPROGESTERONE CAPROATE
     Indication: PRODUCT USED FOR UNKNOWN INDICATION
     Dosage: ?          OTHER FREQUENCY:WEEKLY;?
     Route: 030
     Dates: start: 20171018
  2. PRENATAL [Concomitant]
     Active Substance: VITAMINS

REACTIONS (1)
  - Premature rupture of membranes [None]

NARRATIVE: CASE EVENT DATE: 20180112
